FAERS Safety Report 7571517-6 (Version None)
Quarter: 2011Q2

REPORT INFORMATION
  Report Type: 
  Country: None (occurrence: None)
  Receive Date: 20110624
  Receipt Date: 20110611
  Transmission Date: 20111010
  Serious: Yes (Hospitalization)
  Sender: FDA-Public Use
  Company Number: CA-JNJFOC-20110606530

PATIENT
  Sex: Male
  Weight: 47.7 kg

DRUGS (1)
  1. REMICADE [Suspect]
     Indication: COLITIS ULCERATIVE
     Dosage: PATIENT'S INFUSIONS WERE SPECIFIED AS EVERY 6 TO 8 WEEKS.
     Route: 042
     Dates: start: 20090427

REACTIONS (1)
  - LACERATION [None]
